FAERS Safety Report 20795243 (Version 2)
Quarter: 2022Q3

REPORT INFORMATION
  Report Type: Spontaneous
  Country: US (occurrence: None)
  Receive Date: 20220506
  Receipt Date: 20220701
  Transmission Date: 20221027
  Serious: No
  Sender: FDA-Public Use
  Company Number: 2022A158415

PATIENT
  Sex: Female
  Weight: 117 kg

DRUGS (1)
  1. BEVESPI AEROSPHERE [Suspect]
     Active Substance: FORMOTEROL FUMARATE\GLYCOPYRROLATE
     Indication: Chronic obstructive pulmonary disease
     Dosage: 9MCG- 4.8MCG 2 PUFFS TWICE A DAY
     Route: 055

REACTIONS (4)
  - Chronic obstructive pulmonary disease [Recovering/Resolving]
  - Device use issue [Unknown]
  - Wrong technique in product usage process [Unknown]
  - Device malfunction [Unknown]
